FAERS Safety Report 6473808-9 (Version None)
Quarter: 2009Q4

REPORT INFORMATION
  Report Type: 
  Country: None (occurrence: None)
  Receive Date: 20091204
  Receipt Date: 20091120
  Transmission Date: 20100525
  Serious: Yes (Hospitalization)
  Sender: FDA-Public Use
  Company Number: GB-MEDIMMUNE-MEDI-0009612

PATIENT
  Sex: Male
  Weight: 5.6 kg

DRUGS (3)
  1. SYNAGIS [Suspect]
     Dates: start: 20091013
  2. SYNAGIS [Suspect]
     Indication: CHRONIC RESPIRATORY DISEASE
  3. ALBUTEROL [Concomitant]

REACTIONS (1)
  - RESPIRATORY SYNCYTIAL VIRUS BRONCHIOLITIS [None]
